FAERS Safety Report 10904113 (Version 1)
Quarter: 2015Q1

REPORT INFORMATION
  Report Type: Spontaneous
  Country: IT (occurrence: None)
  Receive Date: 20150306
  Receipt Date: 20150306
  Transmission Date: 20150721
  Serious: Yes (Other)
  Sender: FDA-Public Use
  Company Number: 8010297

PATIENT
  Sex: Female

DRUGS (1)
  1. EUTIROX (LEVOTHYROXINE SODIUM) [Suspect]
     Active Substance: LEVOTHYROXINE SODIUM
     Indication: PRODUCT USED FOR UNKNOWN INDICATION

REACTIONS (4)
  - Follicular thyroid cancer [None]
  - Papillary thyroid cancer [None]
  - Anti-thyroid antibody positive [None]
  - Neoplasm recurrence [None]

NARRATIVE: CASE EVENT DATE: 201501
